FAERS Safety Report 9744915 (Version 6)
Quarter: 2014Q2

REPORT INFORMATION
  Report Type: Report from Study
  Country: CA (occurrence: CA)
  Receive Date: 20131211
  Receipt Date: 20140430
  Transmission Date: 20141212
  Serious: Yes (Hospitalization)
  Sender: FDA-Public Use
  Company Number: CA-ROCHE-1179472

PATIENT
  Sex: Male
  Weight: 78 kg

DRUGS (5)
  1. ACTEMRA [Suspect]
     Indication: RHEUMATOID ARTHRITIS
     Route: 042
     Dates: start: 20110318, end: 20131112
  2. PREDNISONE [Concomitant]
  3. INSULIN [Concomitant]
     Route: 065
  4. ATENOLOL [Concomitant]
  5. PARIET [Concomitant]

REACTIONS (6)
  - Liver disorder [Unknown]
  - Lung infection [Unknown]
  - Influenza [Unknown]
  - Cough [Recovered/Resolved]
  - Fatigue [Not Recovered/Not Resolved]
  - Malaise [Not Recovered/Not Resolved]
